FAERS Safety Report 8621528-4 (Version None)
Quarter: 2012Q3

REPORT INFORMATION
  Report Type: 
  Country: None (occurrence: None)
  Receive Date: 20120824
  Receipt Date: 20120820
  Transmission Date: 20120928
  Serious: Yes (Disabling)
  Sender: FDA-Public Use
  Company Number: US-009507513-1208USA008361

PATIENT

DRUGS (9)
  1. DILTIAZEM HCL [Concomitant]
     Indication: HYPERTENSION
  2. LISINOPRIL [Concomitant]
     Indication: HYPERTENSION
  3. URECHOLINE [Concomitant]
     Indication: BLADDER DISORDER
  4. CLONIDINE [Concomitant]
  5. ZOCOR [Suspect]
     Indication: BLOOD CHOLESTEROL
     Dosage: UNK DF, UNK
     Route: 048
     Dates: end: 19990101
  6. PROPECIA [Concomitant]
     Dosage: UNK DF, UNK
     Route: 048
  7. DEPAKOTE [Concomitant]
     Indication: MIGRAINE
  8. WARFARIN SODIUM [Concomitant]
  9. HYDROCHLOROTHIAZIDE [Concomitant]

REACTIONS (4)
  - NERVE INJURY [None]
  - MONOPARESIS [None]
  - LIMB INJURY [None]
  - LIMB DISCOMFORT [None]
